FAERS Safety Report 8016041-1 (Version None)
Quarter: 2011Q4

REPORT INFORMATION
  Report Type: 
  Country: None (occurrence: None)
  Receive Date: 20111230
  Receipt Date: 20111230
  Transmission Date: 20120403
  Serious: Yes (Other)
  Sender: FDA-Public Use
  Company Number: None

PATIENT
  Age: 6 Year
  Sex: Male
  Weight: 25.401 kg

DRUGS (2)
  1. STRATTERA [Suspect]
     Indication: ATTENTION DEFICIT/HYPERACTIVITY DISORDER
     Dosage: 25 MG
     Route: 048
     Dates: start: 20111101, end: 20111219
  2. STRATTERA [Concomitant]
     Dosage: 10 MG
     Route: 048
     Dates: start: 20110913, end: 20111219

REACTIONS (8)
  - ABNORMAL BEHAVIOUR [None]
  - ANGER [None]
  - FEAR [None]
  - MOOD SWINGS [None]
  - IRRITABILITY [None]
  - AGGRESSION [None]
  - ATTENTION DEFICIT/HYPERACTIVITY DISORDER [None]
  - SOCIAL AVOIDANT BEHAVIOUR [None]
